FAERS Safety Report 16810800 (Version 7)
Quarter: 2019Q4

REPORT INFORMATION
  Report Type: Spontaneous
  Country: US (occurrence: US)
  Receive Date: 20190916
  Receipt Date: 20191028
  Transmission Date: 20200122
  Serious: Yes (Death, Hospitalization, Other)
  Sender: FDA-Public Use
  Company Number: US-GILEAD-2019-0427928

PATIENT
  Age: 62 Year
  Sex: Female

DRUGS (44)
  1. SODIUM CHLORIDE. [Concomitant]
     Active Substance: SODIUM CHLORIDE
  2. FUROSEMIDE. [Concomitant]
     Active Substance: FUROSEMIDE
  3. VANCOMYCIN [Concomitant]
     Active Substance: VANCOMYCIN
     Dosage: UNK
     Dates: start: 20190912
  4. DEXAMETHASONE. [Concomitant]
     Active Substance: DEXAMETHASONE
     Dosage: UNK
     Route: 048
     Dates: start: 20191012
  5. KEPPRA [Concomitant]
     Active Substance: LEVETIRACETAM
  6. RED BLOOD CELLS, CONCENTRATED [Concomitant]
     Active Substance: HUMAN RED BLOOD CELL
     Dosage: ONE UNIT INTRAOPERATIVELY
     Dates: start: 2019
  7. GLUCOSE [Concomitant]
     Active Substance: DEXTROSE
  8. HYDRALAZINE [Concomitant]
     Active Substance: HYDRALAZINE HYDROCHLORIDE
  9. CEFEPIME [Concomitant]
     Active Substance: CEFEPIME HYDROCHLORIDE
  10. POTASSIUM PHOSPHATES [Concomitant]
     Active Substance: POTASSIUM PHOSPHATE, DIBASIC\POTASSIUM PHOSPHATE, MONOBASIC
  11. DEXAMETHASONE. [Concomitant]
     Active Substance: DEXAMETHASONE
     Dosage: 10 UNK
     Route: 048
     Dates: start: 20190829, end: 20190904
  12. DEXAMETHASONE. [Concomitant]
     Active Substance: DEXAMETHASONE
     Dosage: UNK, Q6H
     Route: 042
     Dates: start: 20190920
  13. LEVETIRACETAM. [Concomitant]
     Active Substance: LEVETIRACETAM
     Dosage: 1000 MG
     Route: 048
     Dates: start: 20190819, end: 20190824
  14. VORICONAZOLE. [Concomitant]
     Active Substance: VORICONAZOLE
  15. ACYCLOVIR [ACICLOVIR] [Concomitant]
     Active Substance: ACYCLOVIR
  16. ENOXAPARIN [Concomitant]
     Active Substance: ENOXAPARIN
  17. FAMOTIDINE. [Concomitant]
     Active Substance: FAMOTIDINE
  18. INSULIN LISPRO [Concomitant]
     Active Substance: INSULIN LISPRO
  19. PANTOPRAZOLE [Concomitant]
     Active Substance: PANTOPRAZOLE
  20. DEXAMETHASONE. [Concomitant]
     Active Substance: DEXAMETHASONE
     Dosage: 10 MG
     Route: 042
     Dates: start: 20190823, end: 20190825
  21. YESCARTA [Suspect]
     Active Substance: AXICABTAGENE CILOLEUCEL
     Indication: DIFFUSE LARGE B-CELL LYMPHOMA
     Dosage: UNK, SINGLE
     Route: 042
     Dates: start: 20190819, end: 20190819
  22. METHOTREXATE. [Concomitant]
     Active Substance: METHOTREXATE
     Dosage: UNK
     Dates: start: 20190726
  23. CEFAZOLIN [Concomitant]
     Active Substance: CEFAZOLIN
  24. FILGRASTIM [Concomitant]
     Active Substance: FILGRASTIM
  25. INSULIN REGULAR HM [Concomitant]
     Active Substance: INSULIN NOS
  26. MAGNESIUM SULFATE. [Concomitant]
     Active Substance: MAGNESIUM SULFATE
  27. VANCOMYCIN [Concomitant]
     Active Substance: VANCOMYCIN
     Dosage: UNK
  28. DEXAMETHASONE. [Concomitant]
     Active Substance: DEXAMETHASONE
     Dosage: UNK
  29. DEXAMETHASONE. [Concomitant]
     Active Substance: DEXAMETHASONE
     Dosage: 10 MG
     Route: 042
     Dates: start: 20190828, end: 20190829
  30. CYCLOPHOSPHAMIDE. [Concomitant]
     Active Substance: CYCLOPHOSPHAMIDE
     Dosage: 780 MG
     Route: 042
     Dates: start: 20190814, end: 20190816
  31. FLUDARABINE [Concomitant]
     Active Substance: FLUDARABINE PHOSPHATE
     Dosage: 45 MG
     Dates: start: 20190814, end: 20190816
  32. LEVETIRACETAM. [Concomitant]
     Active Substance: LEVETIRACETAM
     Dosage: 1000 MG
     Route: 042
     Dates: start: 20190825, end: 20190827
  33. POTASSIUM ACETATE. [Concomitant]
     Active Substance: POTASSIUM ACETATE
  34. SODIUM BICARBONATE. [Concomitant]
     Active Substance: SODIUM BICARBONATE
  35. DEXAMETHASONE. [Concomitant]
     Active Substance: DEXAMETHASONE
     Dosage: 20 MG
     Route: 042
     Dates: start: 20190826, end: 20190828
  36. DEXAMETHASONE. [Concomitant]
     Active Substance: DEXAMETHASONE
     Dosage: BEGINNING TAPER
     Dates: start: 20190923
  37. DEXAMETHASONE. [Concomitant]
     Active Substance: DEXAMETHASONE
     Dosage: INCREASED
     Dates: start: 20190928
  38. PLATELETS [Concomitant]
     Active Substance: HUMAN PLATELET, ALLOGENIC
     Dosage: ONE UNIT PREOPERATIVELY
     Dates: start: 2019
  39. CYTARABINE. [Concomitant]
     Active Substance: CYTARABINE
     Dosage: 3160 MG
     Route: 042
     Dates: start: 20190727, end: 20190727
  40. LEVETIRACETAM. [Concomitant]
     Active Substance: LEVETIRACETAM
     Dosage: 1000 MG
     Route: 048
     Dates: start: 20190828, end: 20190905
  41. ALBUMIN [Concomitant]
     Active Substance: ALBUMIN HUMAN
  42. POTASSIUM CHLORIDE. [Concomitant]
     Active Substance: POTASSIUM CHLORIDE
  43. D5NM [Concomitant]
  44. DEXAMETHASONE. [Concomitant]
     Active Substance: DEXAMETHASONE
     Dosage: UNK
     Route: 042
     Dates: start: 20190919

REACTIONS (18)
  - Tachypnoea [Unknown]
  - Lethargy [Unknown]
  - Traumatic intracranial haemorrhage [Recovering/Resolving]
  - Central nervous system lymphoma [Recovering/Resolving]
  - Anger [Unknown]
  - Agitation [Unknown]
  - Respiratory distress [Unknown]
  - Renal impairment [Unknown]
  - Neurotoxicity [Recovering/Resolving]
  - Confusional state [Unknown]
  - Pleural effusion [Unknown]
  - Death [Fatal]
  - Cytokine release syndrome [Recovered/Resolved]
  - Neurotoxicity [Recovered/Resolved]
  - Enterococcal infection [Unknown]
  - Lung consolidation [Unknown]
  - Cytokine release syndrome [Unknown]
  - Aphasia [Unknown]

NARRATIVE: CASE EVENT DATE: 20190819
